FAERS Safety Report 5876478-3 (Version None)
Quarter: 2008Q3

REPORT INFORMATION
  Report Type: 
  Country: None (occurrence: None)
  Receive Date: 20080910
  Receipt Date: 20080905
  Transmission Date: 20090109
  Serious: Yes (Other)
  Sender: FDA-Public Use
  Company Number: A0746109A

PATIENT
  Age: 20 Year
  Sex: Male

DRUGS (2)
  1. LAMICTAL [Suspect]
     Indication: BIPOLAR DISORDER
     Dosage: 25MG PER DAY
     Route: 048
     Dates: start: 20080903, end: 20080903
  2. SEROQUEL [Concomitant]

REACTIONS (6)
  - ANXIETY [None]
  - ERYTHEMA [None]
  - HEADACHE [None]
  - PARANOIA [None]
  - RASH [None]
  - YELLOW SKIN [None]
